FAERS Safety Report 12175888 (Version 3)
Quarter: 2016Q2

REPORT INFORMATION
  Report Type: Spontaneous
  Country: US (occurrence: US)
  Receive Date: 20160314
  Receipt Date: 20160429
  Transmission Date: 20160815
  Serious: No
  Sender: FDA-Public Use
  Company Number: US-PFIZER INC-2016129858

PATIENT
  Age: 61 Year
  Sex: Female
  Weight: 68 kg

DRUGS (5)
  1. TRAMADOL. [Concomitant]
     Active Substance: TRAMADOL
     Indication: SCOLIOSIS
  2. LYRICA [Suspect]
     Active Substance: PREGABALIN
     Indication: MUSCULOSKELETAL DISORDER
  3. TRAMADOL. [Concomitant]
     Active Substance: TRAMADOL
     Indication: BACK DISORDER
     Dosage: 50 MG UP TO SEVEN A DAY
     Dates: start: 2015
  4. TRAMADOL. [Concomitant]
     Active Substance: TRAMADOL
     Indication: MUSCULOSKELETAL DISORDER
  5. LYRICA [Suspect]
     Active Substance: PREGABALIN
     Indication: BACK DISORDER
     Dosage: 75 MG, 3X/DAY
     Route: 048
     Dates: start: 201502

REACTIONS (8)
  - Pain in extremity [Unknown]
  - Headache [Not Recovered/Not Resolved]
  - Back pain [Unknown]
  - Muscle spasms [Not Recovered/Not Resolved]
  - Muscle tightness [Not Recovered/Not Resolved]
  - Insomnia [Not Recovered/Not Resolved]
  - Emotional disorder [Unknown]
  - Neuralgia [Not Recovered/Not Resolved]

NARRATIVE: CASE EVENT DATE: 2015
